FAERS Safety Report 17439274 (Version 1)
Quarter: 2020Q1

REPORT INFORMATION
  Report Type: Spontaneous
  Country: US (occurrence: US)
  Receive Date: 20200205
  Receipt Date: 20200205
  Transmission Date: 20200409
  Serious: No
  Sender: FDA-Public Use
  Company Number: None

PATIENT
  Age: 77 Year
  Sex: Female
  Weight: 65.77 kg

DRUGS (1)
  1. TUDORZA PRESSAIR [Suspect]
     Active Substance: ACLIDINIUM BROMIDE

REACTIONS (6)
  - Stomatitis [None]
  - Rash [None]
  - Cough [None]
  - Dysgeusia [None]
  - Swollen tongue [None]
  - Dysphonia [None]

NARRATIVE: CASE EVENT DATE: 20191217
